FAERS Safety Report 4783494-1 (Version None)
Quarter: 2005Q3

REPORT INFORMATION
  Report Type: 
  Country: None (occurrence: None)
  Receive Date: 20050929
  Receipt Date: 20050921
  Transmission Date: 20060218
  Serious: Yes (Other)
  Sender: FDA-Public Use
  Company Number: PHBS2005TR13883

PATIENT
  Age: 23 Year
  Sex: Female

DRUGS (4)
  1. OXCARBAZEPINE [Suspect]
     Indication: EPILEPSY
     Dosage: 400 MG/D
     Route: 048
  2. TOPAMAX [Suspect]
     Indication: EPILEPSY
     Dosage: 200 MG/D
     Route: 048
  3. FOLIC ACID [Suspect]
  4. SUPRADYN [Suspect]
     Dosage: 1 DF, QD
     Route: 048

REACTIONS (3)
  - CAESAREAN SECTION [None]
  - DRUG EXPOSURE DURING PREGNANCY [None]
  - NORMAL NEWBORN [None]
